FAERS Safety Report 13076888 (Version 1)
Quarter: 2016Q4

REPORT INFORMATION
  Report Type: Spontaneous
  Country: US (occurrence: US)
  Receive Date: 20161230
  Receipt Date: 20161230
  Transmission Date: 20170207
  Serious: Yes (Other)
  Sender: FDA-Public Use
  Company Number: US-PFIZER INC-2016592921

PATIENT
  Sex: Female

DRUGS (1)
  1. SERTRALINE HCL [Suspect]
     Active Substance: SERTRALINE HYDROCHLORIDE
     Dosage: 50 MG, 2X/DAY (50 MG IN AM AND 50 MG IN PM)

REACTIONS (4)
  - Bladder pain [Unknown]
  - Ulcer [Unknown]
  - Dyspepsia [Unknown]
  - Drug intolerance [Unknown]
